FAERS Safety Report 10792429 (Version 2)
Quarter: 2015Q1

REPORT INFORMATION
  Report Type: Spontaneous
  Country: FR (occurrence: FR)
  Receive Date: 20150213
  Receipt Date: 20150218
  Transmission Date: 20150721
  Serious: Yes (Death)
  Sender: FDA-Public Use
  Company Number: FR-PFIZER INC-2015053688

PATIENT
  Age: 23 Year
  Sex: Male
  Weight: 75 kg

DRUGS (2)
  1. ALFENTANIL [Suspect]
     Active Substance: ALFENTANIL
     Dosage: UNK
     Route: 042
  2. MORPHINE SULFATE. [Suspect]
     Active Substance: MORPHINE SULFATE
     Route: 042

REACTIONS (5)
  - Toxicity to various agents [Fatal]
  - Hypotension [Fatal]
  - Intentional overdose [Fatal]
  - Drug abuse [Fatal]
  - Respiratory depression [Fatal]

NARRATIVE: CASE EVENT DATE: 20140722
